FAERS Safety Report 6444536-0 (Version None)
Quarter: 2009Q4

REPORT INFORMATION
  Report Type: 
  Country: None (occurrence: None)
  Receive Date: 20091117
  Receipt Date: 20091117
  Transmission Date: 20100525
  Serious: Yes (Other)
  Sender: FDA-Public Use
  Company Number: None

PATIENT
  Age: 4 Month
  Sex: Male
  Weight: 6.74 kg

DRUGS (2)
  1. TAMIFLU [Suspect]
     Indication: INFLUENZA
     Dosage: 1.5 ML TWICE DAILY PO ONE DOSE
     Route: 048
     Dates: start: 20091110, end: 20091110
  2. ACETAMINOPHEN [Concomitant]

REACTIONS (2)
  - RASH MACULAR [None]
  - SEBORRHOEIC DERMATITIS [None]
